FAERS Safety Report 7054064-X (Version None)
Quarter: 2010Q4

REPORT INFORMATION
  Report Type: 
  Country: None (occurrence: None)
  Receive Date: 20101020
  Receipt Date: 20101007
  Transmission Date: 20110411
  Serious: Yes (Hospitalization)
  Sender: FDA-Public Use
  Company Number: NF-CELGENEUS-122-21880-10082770

PATIENT
  Sex: Male
  Weight: 68 kg

DRUGS (15)
  1. REVLIMID [Suspect]
     Indication: MULTIPLE MYELOMA
     Route: 048
     Dates: start: 20100802, end: 20100809
  2. REVLIMID [Suspect]
     Route: 048
     Dates: end: 20100809
  3. REVLIMID [Suspect]
     Route: 048
     Dates: start: 20100913
  4. MELPHALAN HYDROCHLORIDE [Suspect]
     Indication: MULTIPLE MYELOMA
     Route: 048
     Dates: start: 20100802, end: 20100805
  5. MELPHALAN HYDROCHLORIDE [Suspect]
     Route: 048
     Dates: start: 20100913
  6. PREDNISONE TAB [Suspect]
     Indication: MULTIPLE MYELOMA
     Route: 048
     Dates: start: 20100802, end: 20100805
  7. PREDNISONE TAB [Suspect]
     Route: 048
     Dates: start: 20100913
  8. ASPIRIN [Concomitant]
     Indication: PROPHYLAXIS
     Route: 048
     Dates: start: 20090626
  9. SIMVASTATIN [Concomitant]
     Indication: PROPHYLAXIS
     Route: 048
     Dates: start: 20090627
  10. METOPROLOL SUCCINATE [Concomitant]
     Indication: HYPERTENSION
     Route: 048
     Dates: start: 20090627
  11. METOPROLOL SUCCINATE [Concomitant]
     Indication: PROPHYLAXIS
  12. TRIATEC [Concomitant]
     Indication: HYPERTENSION
     Route: 048
     Dates: start: 20090101
  13. SOMAC [Concomitant]
     Route: 048
     Dates: start: 20100626
  14. ONDANSETRON [Concomitant]
     Route: 048
     Dates: start: 20100802, end: 20100916
  15. CALCIGRAN FORTE [Concomitant]
     Route: 048
     Dates: start: 20100827

REACTIONS (3)
  - DEEP VEIN THROMBOSIS [None]
  - LUNG ABSCESS [None]
  - PULMONARY EMBOLISM [None]
